FAERS Safety Report 8807976 (Version 2)
Quarter: 2015Q2

REPORT INFORMATION
  Report Type: Report from Study
  Country: US (occurrence: US)
  Receive Date: 20120925
  Receipt Date: 20150406
  Transmission Date: 20150821
  Serious: Yes (Death)
  Sender: FDA-Public Use
  Company Number: US-ROCHE-1128569

PATIENT
  Sex: Female

DRUGS (6)
  1. AVASTIN [Suspect]
     Active Substance: BEVACIZUMAB
     Indication: COLON CANCER
     Dosage: RECEIVED ON 10/APR/2007, 24/APR/2007
     Route: 065
  2. ONDANSETRON [Concomitant]
     Active Substance: ONDANSETRON
     Dosage: RECEIVED ON 10/APR/2007, 24/APR/2007
     Route: 065
  3. ARANESP [Concomitant]
     Active Substance: DARBEPOETIN ALFA
     Dosage: RECEIVED ON 10/APR/2007, 24/APR/2007
     Route: 058
  4. DECADRON [Concomitant]
     Active Substance: DEXAMETHASONE
     Dosage: RECEIVED ON 10/APR/2007, 24/APR/2007
     Route: 065
  5. PROCRIT [Concomitant]
     Active Substance: ERYTHROPOIETIN
     Dosage: RECEIVED ON 2007
     Route: 065
  6. COUMADIN [Concomitant]
     Active Substance: WARFARIN SODIUM
     Dosage: RECEIVED ON 24/APR/2007
     Route: 065

REACTIONS (4)
  - Fatigue [Unknown]
  - Death [Fatal]
  - Off label use [Unknown]
  - Arthralgia [Unknown]
